FAERS Safety Report 12051051 (Version 1)
Quarter: 2016Q1

REPORT INFORMATION
  Report Type: Spontaneous
  Country: US (occurrence: US)
  Receive Date: 20160209
  Receipt Date: 20160209
  Transmission Date: 20160526
  Serious: Yes (Other)
  Sender: FDA-Public Use
  Company Number: US-BRISTOL-MYERS SQUIBB COMPANY-BMS-2016-005183

PATIENT
  Sex: Male

DRUGS (1)
  1. COUMADIN [Suspect]
     Active Substance: WARFARIN SODIUM
     Indication: CARDIAC FAILURE CONGESTIVE
     Route: 048
     Dates: start: 2006

REACTIONS (5)
  - Neck surgery [Unknown]
  - Dyspnoea [Unknown]
  - Malaise [Unknown]
  - Implantable defibrillator insertion [Unknown]
  - Contusion [Unknown]

NARRATIVE: CASE EVENT DATE: 2009
